FAERS Safety Report 4989282-5 (Version None)
Quarter: 2006Q2

REPORT INFORMATION
  Report Type: 
  Country: None (occurrence: None)
  Receive Date: 20060425
  Receipt Date: 20060412
  Transmission Date: 20061013
  Serious: Yes (Other)
  Sender: FDA-Public Use
  Company Number: 2006025207

PATIENT
  Age: 45 Year
  Sex: Male

DRUGS (3)
  1. ZOLOFT [Suspect]
     Indication: OBSESSIVE-COMPULSIVE DISORDER
  2. ZOLOFT [Suspect]
     Indication: PANIC REACTION
  3. KLONOPIN [Concomitant]

REACTIONS (5)
  - CHILLS [None]
  - OSTEOMYELITIS [None]
  - PAIN [None]
  - PSYCHOSOMATIC DISEASE [None]
  - PYREXIA [None]
